FAERS Safety Report 23338320 (Version 2)
Quarter: 2024Q1

REPORT INFORMATION
  Report Type: Spontaneous
  Country: PL (occurrence: PL)
  Receive Date: 20231226
  Receipt Date: 20240104
  Transmission Date: 20240410
  Serious: Yes (Other)
  Sender: FDA-Public Use
  Company Number: PL-INCYTE CORPORATION-2023IN013370

PATIENT

DRUGS (1)
  1. PEMAZYRE [Suspect]
     Active Substance: PEMIGATINIB
     Indication: Cholangiocarcinoma
     Route: 065

REACTIONS (6)
  - Spinal cord compression [Unknown]
  - Quadriplegia [Recovered/Resolved]
  - Intervertebral disc disorder [Unknown]
  - Intervertebral disc displacement [Unknown]
  - Disease progression [Unknown]
  - Drug effect less than expected [Unknown]
